FAERS Safety Report 7137574-6 (Version None)
Quarter: 2010Q4

REPORT INFORMATION
  Report Type: 
  Country: None (occurrence: None)
  Receive Date: 20101206
  Receipt Date: 20101201
  Transmission Date: 20110411
  Serious: Yes (Other)
  Sender: FDA-Public Use
  Company Number: CA-SP-2010-06066

PATIENT
  Sex: Female

DRUGS (3)
  1. TUBERSOL [Suspect]
     Indication: TUBERCULIN TEST
     Dosage: NOT REPORTED
     Route: 023
     Dates: start: 20100801, end: 20100801
  2. SYMBICORT [Concomitant]
     Dosage: 2 PUFFS TWICE DAILY
  3. BRICANYL [Concomitant]
     Dosage: ONLY BEFORE EXERCISE

REACTIONS (6)
  - ANAPHYLACTIC REACTION [None]
  - DYSPHAGIA [None]
  - DYSPNOEA [None]
  - PRURITUS [None]
  - THROAT TIGHTNESS [None]
  - URTICARIA [None]
